FAERS Safety Report 4763140-3 (Version None)
Quarter: 2005Q3

REPORT INFORMATION
  Report Type: 
  Country: None (occurrence: None)
  Receive Date: 20050826
  Receipt Date: 20050401
  Transmission Date: 20060218
  Serious: Yes (Other)
  Sender: FDA-Public Use
  Company Number: USA-2004-0016268

PATIENT
  Age: 79 Year
  Sex: Female

DRUGS (9)
  1. OXYCONTIN [Suspect]
     Indication: PAIN
     Dosage: 20 MG, BID
  2. PAXIL [Concomitant]
  3. RYTHMOL [Concomitant]
  4. FUROSEMIDE [Concomitant]
  5. K-DUR 10 [Concomitant]
  6. HYDROCHLOROTHIAZIDE [Concomitant]
  7. LORAZEPAM [Concomitant]
  8. PREMARIN [Concomitant]
  9. FLORINEF [Concomitant]

REACTIONS (24)
  - ABDOMINAL DISCOMFORT [None]
  - ABDOMINAL PAIN UPPER [None]
  - ANXIETY [None]
  - ASTHENIA [None]
  - BACK PAIN [None]
  - CHANGE OF BOWEL HABIT [None]
  - DECREASED APPETITE [None]
  - DELUSIONAL DISORDER, UNSPECIFIED TYPE [None]
  - DEPRESSION [None]
  - DIARRHOEA [None]
  - DRUG DEPENDENCE [None]
  - DRUG WITHDRAWAL SYNDROME [None]
  - ESSENTIAL HYPERTENSION [None]
  - FATIGUE [None]
  - FREQUENT BOWEL MOVEMENTS [None]
  - GASTROOESOPHAGEAL REFLUX DISEASE [None]
  - IRRITABLE BOWEL SYNDROME [None]
  - MALAISE [None]
  - NAUSEA [None]
  - OBSESSIVE-COMPULSIVE DISORDER [None]
  - OEDEMA PERIPHERAL [None]
  - OSTEOARTHRITIS [None]
  - PAIN [None]
  - PARANOIA [None]
